FAERS Safety Report 10934709 (Version 1)
Quarter: 2015Q1

REPORT INFORMATION
  Report Type: Spontaneous
  Country: CA (occurrence: CA)
  Receive Date: 20150320
  Receipt Date: 20150320
  Transmission Date: 20150721
  Serious: Yes (Disabling)
  Sender: FDA-Public Use
  Company Number: CA-TEVA-548750ACC

PATIENT
  Age: 56 Year
  Sex: Female
  Weight: 70 kg

DRUGS (4)
  1. VENTOLIN [Concomitant]
     Active Substance: ALBUTEROL SULFATE
     Dosage: UNKNOWN FORM STRENGTH
     Route: 065
  2. MONTELUKAST [Suspect]
     Active Substance: MONTELUKAST SODIUM
     Indication: ASTHMA
     Dosage: 10 MILLIGRAM DAILY;
     Route: 048
  3. MONTELUKAST [Suspect]
     Active Substance: MONTELUKAST SODIUM
     Indication: ASTHMA
     Dosage: 10 MILLIGRAM DAILY;
     Route: 048
  4. ALVESCO [Concomitant]
     Active Substance: CICLESONIDE
     Dosage: UNKNOWN FORM STRENGTH
     Route: 065

REACTIONS (13)
  - Chromaturia [Recovered/Resolved]
  - Hypoaesthesia [Recovered/Resolved]
  - Palpitations [Recovered/Resolved]
  - Arthralgia [Recovered/Resolved]
  - Diarrhoea [Recovered/Resolved]
  - Headache [Recovered/Resolved]
  - Muscle spasms [Recovered/Resolved]
  - Pruritus [Recovered/Resolved]
  - Ecchymosis [Recovered/Resolved]
  - Peripheral swelling [Recovered/Resolved]
  - Paraesthesia [Recovered/Resolved]
  - Abdominal pain [Recovered/Resolved]
  - Dizziness [Recovered/Resolved]
